FAERS Safety Report 5675323-9 (Version None)
Quarter: 2008Q2

REPORT INFORMATION
  Report Type: 
  Country: None (occurrence: None)
  Receive Date: 20080307
  Receipt Date: 20070712
  Transmission Date: 20081010
  Serious: Yes (Other)
  Sender: FDA-Public Use
  Company Number: US200707003101

PATIENT
  Age: 70 Year
  Sex: Male

DRUGS (1)
  1. GEMZAR [Suspect]
     Indication: PANCREATIC CARCINOMA
     Dosage: 2000MG, INTRAVENOUS
     Route: 042
     Dates: start: 20000101

REACTIONS (3)
  - MALAISE [None]
  - PANCREATIC CARCINOMA RECURRENT [None]
  - WEIGHT DECREASED [None]
